FAERS Safety Report 24155899 (Version 1)
Quarter: 2024Q3

REPORT INFORMATION
  Report Type: Spontaneous
  Country: US (occurrence: US)
  Receive Date: 20240731
  Receipt Date: 20240731
  Transmission Date: 20241016
  Serious: Yes (Other)
  Sender: AUROBINDO
  Company Number: US-AUROBINDO PHARMA GMBH-AUR-APL-2014-05905

PATIENT
  Age: 12 Year
  Sex: Male

DRUGS (6)
  1. STAVUDINE [Suspect]
     Active Substance: STAVUDINE
     Indication: Antiretroviral therapy
     Dosage: UNK
     Route: 065
  2. LAMIVUDINE [Suspect]
     Active Substance: LAMIVUDINE
     Indication: Antiretroviral therapy
     Dosage: UNK
     Route: 065
  3. VINCRISTINE [Concomitant]
     Active Substance: VINCRISTINE
     Indication: Kaposi^s sarcoma
     Dosage: UNK
     Route: 065
  4. EFAVIRENZ [Concomitant]
     Active Substance: EFAVIRENZ
     Indication: Antiretroviral therapy
     Dosage: UNK
     Route: 065
  5. BLEOMYCIN [Concomitant]
     Active Substance: BLEOMYCIN SULFATE
     Indication: Kaposi^s sarcoma
     Dosage: UNK
     Route: 065
  6. PACLITAXEL [Concomitant]
     Active Substance: PACLITAXEL
     Indication: Kaposi^s sarcoma
     Dosage: UNK
     Route: 065

REACTIONS (5)
  - Immune reconstitution inflammatory syndrome [Unknown]
  - Neuropathy peripheral [Unknown]
  - Pericardial effusion [Unknown]
  - Skin lesion [Unknown]
  - Dyspnoea [Recovering/Resolving]
